FAERS Safety Report 8131342-4 (Version None)
Quarter: 2012Q1

REPORT INFORMATION
  Report Type: 
  Country: None (occurrence: None)
  Receive Date: 20120213
  Receipt Date: 20120203
  Transmission Date: 20120608
  Serious: Yes (Hospitalization, Other)
  Sender: FDA-Public Use
  Company Number: JP-BRISTOL-MYERS SQUIBB COMPANY-16371536

PATIENT
  Age: 36 Year
  Sex: Female

DRUGS (5)
  1. ABILIFY [Suspect]
     Dosage: PRODUCT STRENGTH IS 6MG
     Route: 048
     Dates: start: 20120118, end: 20120118
  2. ALPRAZOLAM [Suspect]
     Dosage: TABS
     Route: 048
     Dates: start: 20120118, end: 20120118
  3. DORAL [Suspect]
     Dosage: TAB
     Route: 048
     Dates: start: 20120118, end: 20120118
  4. LODOPIN [Suspect]
     Dosage: TAB
     Route: 048
     Dates: start: 20120118, end: 20120118
  5. RISPERIDONE [Suspect]
     Dosage: LIQUID
     Route: 048
     Dates: start: 20120118, end: 20120118

REACTIONS (3)
  - MULTIPLE DRUG OVERDOSE INTENTIONAL [None]
  - SUICIDE ATTEMPT [None]
  - ALTERED STATE OF CONSCIOUSNESS [None]
